FAERS Safety Report 5406651-X (Version None)
Quarter: 2007Q3

REPORT INFORMATION
  Report Type: 
  Country: None (occurrence: None)
  Receive Date: 20070806
  Receipt Date: 20070730
  Transmission Date: 20080115
  Serious: Yes (Other)
  Sender: FDA-Public Use
  Company Number: US-PFIZER INC-2007063678

PATIENT
  Sex: Female
  Weight: 68.2 kg

DRUGS (5)
  1. LYRICA [Suspect]
     Dates: start: 20070615, end: 20070720
  2. OMEPRAZOLE [Concomitant]
  3. AMLODIPINE BESYLATE [Concomitant]
  4. MOEXIPRIL HCL [Concomitant]
  5. THYROID TAB [Concomitant]

REACTIONS (3)
  - ASTHENIA [None]
  - DEHYDRATION [None]
  - STOMACH DISCOMFORT [None]
